FAERS Safety Report 7316878 (Version 2)
Quarter: 2018Q2

REPORT INFORMATION
  Report Type: Spontaneous
  Country: NL (occurrence: NL)
  Receive Date: 20100311
  Receipt Date: 20180513
  Transmission Date: 20180711
  Serious: Yes (Other)
  Sender: FDA-Public Use
  Company Number: NL-MYLANLABS-2010S1003725

PATIENT
  Age: 45 Year
  Sex: Female
  Weight: 90 kg

DRUGS (1)
  1. RISPERIDONE. [Suspect]
     Active Substance: RISPERIDONE
     Indication: PSYCHOTIC DISORDER
     Dosage: 2 MG,QD 1 KEEP PER DAG
     Dates: start: 20060622

REACTIONS (4)
  - Thirst [Unknown]
  - Headache [Unknown]
  - Weight increased [Recovering/Resolving]
  - Hair colour changes [Recovered/Resolved]

NARRATIVE: CASE EVENT DATE: 200607
